FAERS Safety Report 24760359 (Version 2)
Quarter: 2025Q3

REPORT INFORMATION
  Report Type: Report from Study
  Country: US (occurrence: US)
  Receive Date: 20241220
  Receipt Date: 20250809
  Transmission Date: 20251021
  Serious: Yes (Hospitalization, Other)
  Sender: ALEXION PHARMACEUTICALS
  Company Number: US-AstraZeneca-CH-00767933A

PATIENT
  Age: 78 Year
  Sex: Female
  Weight: 70.306 kg

DRUGS (1)
  1. OLAPARIB [Suspect]
     Active Substance: OLAPARIB
     Indication: Uterine cancer
     Dosage: 300 MILLIGRAM, BID
     Dates: start: 20240313

REACTIONS (3)
  - Retinal tear [Not Recovered/Not Resolved]
  - Nausea [Not Recovered/Not Resolved]
  - Hair growth rate abnormal [Not Recovered/Not Resolved]

NARRATIVE: CASE EVENT DATE: 20241001
